FAERS Safety Report 11139981 (Version 3)
Quarter: 2015Q3

REPORT INFORMATION
  Report Type: Spontaneous
  Country: US (occurrence: US)
  Receive Date: 20150527
  Receipt Date: 20150731
  Transmission Date: 20151125
  Serious: Yes (Other)
  Sender: FDA-Public Use
  Company Number: US-PFIZER INC-2015177995

PATIENT
  Age: 61 Year
  Sex: Male
  Weight: 114 kg

DRUGS (3)
  1. GABAPENTIN. [Suspect]
     Active Substance: GABAPENTIN
     Dosage: 300 MG, 2X/DAY
     Dates: start: 201405
  2. GABAPENTIN. [Suspect]
     Active Substance: GABAPENTIN
     Dosage: 300 MG, 1X/DAY AT NIGHT
     Dates: start: 20150507, end: 20150518
  3. GABAPENTIN. [Suspect]
     Active Substance: GABAPENTIN
     Indication: NEUROPATHY PERIPHERAL
     Dosage: 300 MG, 1X/DAY
     Dates: start: 201404

REACTIONS (12)
  - Burns second degree [Recovering/Resolving]
  - Weight decreased [Unknown]
  - Contusion [Unknown]
  - Drug hypersensitivity [Unknown]
  - Drug ineffective for unapproved indication [Unknown]
  - Glycosylated haemoglobin increased [Unknown]
  - Affective disorder [Unknown]
  - Hypoaesthesia [Unknown]
  - Diabetes mellitus [Unknown]
  - Blister [Unknown]
  - Pain in extremity [Unknown]
  - Skin discolouration [Unknown]

NARRATIVE: CASE EVENT DATE: 201502
